FAERS Safety Report 9346400 (Version 2)
Quarter: 2013Q3

REPORT INFORMATION
  Report Type: Spontaneous
  Country: CO (occurrence: CO)
  Receive Date: 20130613
  Receipt Date: 20130725
  Transmission Date: 20140515
  Serious: Yes (Death)
  Sender: FDA-Public Use
  Company Number: CO-PFIZER INC-2013178187

PATIENT
  Age: 83 Year
  Sex: Male

DRUGS (1)
  1. CARDURAN [Suspect]
     Dosage: 4 MG, UNK
     Route: 048

REACTIONS (1)
  - Arterial disorder [Fatal]
